FAERS Safety Report 11523892 (Version 1)
Quarter: 2015Q3

REPORT INFORMATION
  Report Type: Spontaneous
  Country: GR (occurrence: GR)
  Receive Date: 20150918
  Receipt Date: 20150918
  Transmission Date: 20151125
  Serious: Yes (Hospitalization)
  Sender: FDA-Public Use
  Company Number: PHHY2015GR109989

PATIENT
  Age: 86 Year
  Sex: Male

DRUGS (1)
  1. DIGOXIN. [Suspect]
     Active Substance: DIGOXIN
     Indication: PRODUCT USED FOR UNKNOWN INDICATION
     Route: 065

REACTIONS (11)
  - Gastrointestinal wall thickening [Unknown]
  - Ascites [Unknown]
  - Abdominal tenderness [Unknown]
  - Intestinal ischaemia [Unknown]
  - Renal impairment [Unknown]
  - Atrioventricular block complete [Unknown]
  - Vascular injury [Unknown]
  - Toxicity to various agents [Unknown]
  - Abdominal pain [Unknown]
  - Drug level increased [Unknown]
  - Ileus [Recovered/Resolved]
